FAERS Safety Report 10433358 (Version 1)
Quarter: 2014Q3

REPORT INFORMATION
  Report Type: Spontaneous
  Country: JP (occurrence: JP)
  Receive Date: 20140905
  Receipt Date: 20140905
  Transmission Date: 20150326
  Serious: No
  Sender: FDA-Public Use
  Company Number: PHHY2012JP135849

PATIENT
  Age: 38 Year
  Sex: Female

DRUGS (2)
  1. TASIGNA [Suspect]
     Active Substance: NILOTINIB
     Indication: CHRONIC MYELOID LEUKAEMIA
  2. GLIVEC [Suspect]
     Active Substance: IMATINIB MESYLATE

REACTIONS (7)
  - Myalgia [Unknown]
  - White blood cell count decreased [Unknown]
  - Somnolence [Unknown]
  - Blood creatine phosphokinase increased [Unknown]
  - Bone pain [Unknown]
  - Malaise [Unknown]
  - Blood bilirubin increased [Unknown]
